FAERS Safety Report 24940709 (Version 1)
Quarter: 2025Q1

REPORT INFORMATION
  Report Type: Spontaneous
  Country: US (occurrence: US)
  Receive Date: 20250207
  Receipt Date: 20250207
  Transmission Date: 20250409
  Serious: No
  Sender: ZYDUS PHARM
  Company Number: US-CADILA HEALTHCARE LIMITED-US-ZYDUS-116952

PATIENT

DRUGS (3)
  1. ISOTRETINOIN [Suspect]
     Active Substance: ISOTRETINOIN
     Indication: Product used for unknown indication
     Route: 048
     Dates: start: 20241028, end: 2024
  2. ISOTRETINOIN [Suspect]
     Active Substance: ISOTRETINOIN
     Dates: start: 20241007, end: 202410
  3. ISOTRETINOIN [Suspect]
     Active Substance: ISOTRETINOIN
     Dates: start: 20240830, end: 202410

REACTIONS (1)
  - Laboratory test abnormal [Unknown]

NARRATIVE: CASE EVENT DATE: 20240101
